FAERS Safety Report 4655280-4 (Version None)
Quarter: 2005Q2

REPORT INFORMATION
  Report Type: 
  Country: None (occurrence: None)
  Receive Date: 20050506
  Receipt Date: 20050428
  Transmission Date: 20051028
  Serious: Yes (Hospitalization)
  Sender: FDA-Public Use
  Company Number: US-JNJFOC-20050403126

PATIENT
  Sex: Female
  Weight: 61.24 kg

DRUGS (6)
  1. DURAGESIC-100 [Suspect]
     Route: 062
  2. DETROL [Concomitant]
     Indication: NEUROGENIC BLADDER
  3. DITROPAN XL [Concomitant]
  4. VICODIN [Concomitant]
  5. VICODIN [Concomitant]
  6. CHOLESTEROL MED [Concomitant]

REACTIONS (12)
  - ANXIETY [None]
  - DISCOMFORT [None]
  - DRUG WITHDRAWAL SYNDROME [None]
  - HYPERVENTILATION [None]
  - IRRITABILITY [None]
  - NAUSEA [None]
  - PSYCHOMOTOR AGITATION [None]
  - RESTLESSNESS [None]
  - SOMNOLENCE [None]
  - STOMACH DISCOMFORT [None]
  - TREMOR [None]
  - VOMITING [None]
